FAERS Safety Report 8817914 (Version 1)
Quarter: 2012Q4

REPORT INFORMATION
  Report Type: 
  Country: CA (occurrence: CA)
  Receive Date: 20121004
  Receipt Date: 20121004
  Transmission Date: 20130627
  Serious: Yes (Other)
  Sender: FDA-Public Use
  Company Number: PHHY2006CA009918

PATIENT

DRUGS (1)
  1. SANDOSTATIN LAR [Suspect]
     Dates: start: 20060306

REACTIONS (5)
  - Blood pressure decreased [Unknown]
  - Haemoglobin decreased [Unknown]
  - Musculoskeletal pain [Unknown]
  - Blood glucose increased [Unknown]
  - Injection site pain [Unknown]
